FAERS Safety Report 16793497 (Version 1)
Quarter: 2019Q3

REPORT INFORMATION
  Report Type: Spontaneous
  Country: JP (occurrence: JP)
  Receive Date: 20190911
  Receipt Date: 20190911
  Transmission Date: 20191005
  Serious: Yes (Other)
  Sender: FDA-Public Use
  Company Number: JP-ROCHE-2398181

PATIENT
  Age: 76 Year
  Sex: Female

DRUGS (3)
  1. BONVIVA [Suspect]
     Active Substance: IBANDRONATE SODIUM
     Indication: OSTEOPOROSIS
     Dosage: ON 14/JUN/2019, SHE HAD THE LAST DOSE OF IBANDRONATE SODIUM HYDRATE.
     Route: 048
     Dates: start: 201903
  2. BENET [Suspect]
     Active Substance: RISEDRONATE SODIUM
     Indication: OSTEOPOROSIS
     Route: 048
     Dates: start: 20170203, end: 201903
  3. EDIROL [Concomitant]
     Active Substance: ELDECALCITOL
     Route: 065
     Dates: start: 201801

REACTIONS (2)
  - Post procedural haemorrhage [Recovering/Resolving]
  - Dental necrosis [Recovering/Resolving]

NARRATIVE: CASE EVENT DATE: 201905
